FAERS Safety Report 9857480 (Version 1)
Quarter: 2014Q1

REPORT INFORMATION
  Report Type: Spontaneous
  Country: PL (occurrence: PL)
  Receive Date: 20140131
  Receipt Date: 20140131
  Transmission Date: 20141002
  Serious: Yes (Hospitalization)
  Sender: FDA-Public Use
  Company Number: PL-ROCHE-1339124

PATIENT
  Age: 71 Year
  Sex: Female

DRUGS (3)
  1. MYCOPHENOLATE MOFETIL [Suspect]
     Indication: RENAL TRANSPLANT
     Route: 065
     Dates: start: 20081001
  2. CICLOSPORIN [Suspect]
     Indication: RENAL TRANSPLANT
     Route: 048
     Dates: start: 20081001
  3. PREDNISONE [Concomitant]
     Route: 065
     Dates: start: 20081001

REACTIONS (1)
  - Neoplasm [Unknown]
